FAERS Safety Report 23967820 (Version 2)
Quarter: 2025Q1

REPORT INFORMATION
  Report Type: Spontaneous
  Country: US (occurrence: US)
  Receive Date: 20240612
  Receipt Date: 20250307
  Transmission Date: 20250408
  Serious: No
  Sender: PFIZER
  Company Number: US-PFIZER INC-202400190724

PATIENT
  Age: 62 Year
  Sex: Male

DRUGS (6)
  1. XELJANZ [Suspect]
     Active Substance: TOFACITINIB CITRATE
     Indication: Rheumatoid arthritis
     Dosage: 5 MG, 2X/DAY (DO NOT CRUSH, CHEW OR SPLIT, SWALLOW WHOLE)
     Route: 048
  2. XELJANZ [Suspect]
     Active Substance: TOFACITINIB CITRATE
     Dosage: TAKE 1 TABLET BY MOUTH TWICE A DAY DO NOT CRUSH, CHEW, OR SPLIT. SWALLOW WHOLE
     Route: 048
  3. MELOXICAM [Concomitant]
     Active Substance: MELOXICAM
  4. LOSARTAN POTASSIUM [Concomitant]
     Active Substance: LOSARTAN POTASSIUM
  5. NITROFURANTOIN [Concomitant]
     Active Substance: NITROFURANTOIN
  6. VITAMIN C [Concomitant]
     Active Substance: ASCORBIC ACID

REACTIONS (3)
  - Infected cyst [Unknown]
  - Abdominal discomfort [Unknown]
  - Condition aggravated [Unknown]

NARRATIVE: CASE EVENT DATE: 20240101
